FAERS Safety Report 21489194 (Version 1)
Quarter: 2022Q4

REPORT INFORMATION
  Report Type: Spontaneous
  Country: DE (occurrence: DE)
  Receive Date: 20221021
  Receipt Date: 20221021
  Transmission Date: 20230113
  Serious: Yes (Death, Hospitalization, Other)
  Sender: FDA-Public Use
  Company Number: DE-VELOXIS PHARMACEUTICALS-2021VELDE-000427

PATIENT
  Age: 59 Year
  Sex: Female

DRUGS (16)
  1. ENVARSUS XR [Suspect]
     Active Substance: TACROLIMUS
     Indication: Immunosuppressant drug therapy
     Dosage: 4 MILLIGRAM, QD, ON DAY 56
     Route: 048
  2. ENVARSUS XR [Suspect]
     Active Substance: TACROLIMUS
     Dosage: 2 MILLIGRAM, QD, TAPERED DOWN ON DAY 61
     Route: 048
  3. PREDNISOLONE [Suspect]
     Active Substance: PREDNISOLONE
     Indication: Immunosuppressant drug therapy
     Dosage: TAPERED DOWN FROM 500 MG TO 80 MG ON DAY 51 TO 58 AND THEN TAPERED DOWN TO 60 MG ON DAY 76
  4. PREDNISOLONE [Suspect]
     Active Substance: PREDNISOLONE
     Dosage: 500 MILLIGRAM, QD ON DAY 50
  5. PREDNISOLONE [Suspect]
     Active Substance: PREDNISOLONE
     Dosage: 20 MILLIGRAM, QD FROM DAY 47-48
  6. PREDNISOLONE [Suspect]
     Active Substance: PREDNISOLONE
     Dosage: TAPERED DOWN FROM 500 MG TO 200 MG/DAY IN DAYS 90-90
  7. PREDNISOLONE [Suspect]
     Active Substance: PREDNISOLONE
     Dosage: 500 MILLIGRAM FROM DAY 42-46
  8. PREDNISOLONE [Suspect]
     Active Substance: PREDNISOLONE
     Dosage: 100 MILLIGRAM, QD ON DAY 85
  9. PREDNISOLONE [Suspect]
     Active Substance: PREDNISOLONE
     Dosage: 500 MILLIGRAM, QD ON DAY 85
  10. PREDNISOLONE [Suspect]
     Active Substance: PREDNISOLONE
     Dosage: 500 MILLIGRAM, QD ON DAY 41
  11. OBINUTUZUMAB [Suspect]
     Active Substance: OBINUTUZUMAB
     Indication: Follicular lymphoma
     Dosage: 1000 MILLIGRAM (D1, D8, D15 OF C1; D1 OF C2-6)
     Route: 065
  12. ATEZOLIZUMAB [Suspect]
     Active Substance: ATEZOLIZUMAB
     Indication: Follicular lymphoma
     Dosage: 1200 MILLIGRAM (D1 OF C2-6)
     Route: 065
  13. BUDESONIDE [Suspect]
     Active Substance: BUDESONIDE
     Indication: Immunosuppressant drug therapy
     Dosage: 1 MILLIGRAM, QD
  14. BENDAMUSTINE [Suspect]
     Active Substance: BENDAMUSTINE
     Indication: Follicular lymphoma
     Dosage: UNK
     Route: 065
     Dates: start: 2017
  15. TOCILIZUMAB [Suspect]
     Active Substance: TOCILIZUMAB
     Indication: Immunosuppressant drug therapy
     Dosage: 3000 MILLIGRAM ON DAY 44 AND DAY 85
     Route: 042
  16. POLATUZUMAB VEDOTIN [Suspect]
     Active Substance: POLATUZUMAB VEDOTIN
     Indication: Follicular lymphoma
     Dosage: 1.8 MILLIGRAM/KILOGRAM D1 OF CYCLE 1-6
     Route: 065

REACTIONS (11)
  - Bronchopulmonary aspergillosis [Fatal]
  - Erythema [Recovered/Resolved]
  - Pneumonitis [Not Recovered/Not Resolved]
  - Stomatitis [Recovered/Resolved]
  - Disease progression [Unknown]
  - Guillain-Barre syndrome [Unknown]
  - Hypertransaminasaemia [Unknown]
  - Pulmonary embolism [Unknown]
  - Conjunctivitis [Recovered/Resolved]
  - Cytomegalovirus infection [Unknown]
  - Product use in unapproved indication [Unknown]
